FAERS Safety Report 5838466-2 (Version None)
Quarter: 2008Q3

REPORT INFORMATION
  Report Type: 
  Country: None (occurrence: None)
  Receive Date: 20080808
  Receipt Date: 20080731
  Transmission Date: 20090109
  Serious: Yes (Other)
  Sender: FDA-Public Use
  Company Number: US-ASTRAZENECA-2008UW10020

PATIENT
  Age: 550 Month
  Sex: Female
  Weight: 88.5 kg

DRUGS (2)
  1. SEROQUEL [Suspect]
     Indication: BIPOLAR I DISORDER
     Dosage: 100 - 150 MG
     Route: 048
     Dates: start: 20020401, end: 20040601
  2. PROZAC [Concomitant]
     Dates: start: 20040801

REACTIONS (9)
  - ABDOMINAL NEOPLASM [None]
  - BLOOD CHOLESTEROL INCREASED [None]
  - METRORRHAGIA [None]
  - MIGRAINE [None]
  - OBESITY [None]
  - TONGUE NEOPLASM BENIGN [None]
  - TOOTH DISORDER [None]
  - TYPE 2 DIABETES MELLITUS [None]
  - UTERINE LEIOMYOMA [None]
